FAERS Safety Report 14754922 (Version 1)
Quarter: 2018Q2

REPORT INFORMATION
  Report Type: Spontaneous
  Country: VN (occurrence: VN)
  Receive Date: 20180413
  Receipt Date: 20180413
  Transmission Date: 20180711
  Serious: Yes (Other)
  Sender: FDA-Public Use
  Company Number: VN-ROCHE-2104564

PATIENT
  Sex: Male

DRUGS (3)
  1. AVASTIN [Suspect]
     Active Substance: BEVACIZUMAB
     Indication: INTESTINAL METASTASIS
     Route: 065
  2. XELODA [Suspect]
     Active Substance: CAPECITABINE
     Indication: INTESTINAL METASTASIS
     Route: 065
  3. OXALIPLATIN. [Suspect]
     Active Substance: OXALIPLATIN
     Indication: INTESTINAL METASTASIS
     Route: 065

REACTIONS (6)
  - Pleural effusion [Unknown]
  - Anaemia [Unknown]
  - White blood cell count increased [Unknown]
  - Ascites [Unknown]
  - Oedema peripheral [Unknown]
  - Transaminases increased [Unknown]
